FAERS Safety Report 5149718-6 (Version None)
Quarter: 2006Q4

REPORT INFORMATION
  Report Type: 
  Country: None (occurrence: None)
  Receive Date: 20061113
  Receipt Date: 20060711
  Transmission Date: 20070319
  Serious: Yes (Hospitalization)
  Sender: FDA-Public Use
  Company Number: 2006UW14235

PATIENT
  Age: 53 Year
  Sex: Male
  Weight: 81.6 kg

DRUGS (9)
  1. SEROQUEL [Suspect]
     Indication: BIPOLAR DISORDER
     Route: 048
  2. ABILIFY [Concomitant]
  3. TRICOR [Concomitant]
  4. VASOTEC [Concomitant]
     Indication: BLOOD PRESSURE
  5. LITHIUM CARBONATE [Concomitant]
  6. ASPIRIN [Concomitant]
  7. KLONOPIN [Concomitant]
  8. ZYPREXA [Concomitant]
  9. RISPERDAL [Concomitant]

REACTIONS (10)
  - AGITATION [None]
  - ASPARTATE AMINOTRANSFERASE INCREASED [None]
  - BIPOLAR DISORDER [None]
  - BUNDLE BRANCH BLOCK RIGHT [None]
  - GRANDIOSITY [None]
  - IRRITABILITY [None]
  - MOOD SWINGS [None]
  - SCHIZOAFFECTIVE DISORDER [None]
  - SELF MUTILATION [None]
  - SUICIDAL IDEATION [None]
